FAERS Safety Report 7135656-6 (Version None)
Quarter: 2010Q4

REPORT INFORMATION
  Report Type: 
  Country: None (occurrence: None)
  Receive Date: 20101203
  Receipt Date: 20101129
  Transmission Date: 20110411
  Serious: Yes (Hospitalization)
  Sender: FDA-Public Use
  Company Number: AU-ROCHE-744943

PATIENT
  Age: 50 Year
  Sex: Male

DRUGS (2)
  1. PEG-INTRON [Suspect]
     Indication: HEPATITIS C
     Route: 065
  2. RIBAVARIN [Suspect]
     Indication: HEPATITIS C
     Route: 065

REACTIONS (1)
  - ACQUIRED HAEMOPHILIA [None]
